FAERS Safety Report 4324181-3 (Version None)
Quarter: 2004Q1

REPORT INFORMATION
  Report Type: 
  Country: None (occurrence: None)
  Receive Date: 20040325
  Receipt Date: 20040310
  Transmission Date: 20041129
  Serious: Yes (Death)
  Sender: FDA-Public Use
  Company Number: 2004S1000718

PATIENT
  Age: 53 Year
  Sex: Male

DRUGS (3)
  1. CLOZAPINE [Suspect]
     Indication: SCHIZOAFFECTIVE DISORDER
     Dosage: SEE IMAGE
     Route: 048
     Dates: start: 20011108, end: 20040201
  2. DOXAZOSIN MESYLATE [Concomitant]
  3. MULTIVITAMIN [Concomitant]

REACTIONS (1)
  - CARCINOMA [None]
